FAERS Safety Report 15189759 (Version 7)
Quarter: 2019Q1

REPORT INFORMATION
  Report Type: Spontaneous
  Country: PL (occurrence: PL)
  Receive Date: 20180724
  Receipt Date: 20190225
  Transmission Date: 20190417
  Serious: Yes (Other)
  Sender: FDA-Public Use
  Company Number: PL-PFIZER INC-2018288276

PATIENT
  Age: 28 Year
  Sex: Female

DRUGS (2)
  1. PREGABALIN. [Suspect]
     Active Substance: PREGABALIN
     Indication: DISSOCIATIVE IDENTITY DISORDER
     Dosage: 450 MG, 1X/DAY
  2. PREGABALIN. [Suspect]
     Active Substance: PREGABALIN
     Indication: FIBROMYALGIA
     Dosage: 300 MG, 1X/DAY

REACTIONS (3)
  - Mental impairment [Recovering/Resolving]
  - Depression [Recovering/Resolving]
  - Self esteem decreased [Recovering/Resolving]
